FAERS Safety Report 18998496 (Version 1)
Quarter: 2021Q1

REPORT INFORMATION
  Report Type: Spontaneous
  Country: PL (occurrence: PL)
  Receive Date: 20210312
  Receipt Date: 20210312
  Transmission Date: 20210420
  Serious: Yes (Other)
  Sender: FDA-Public Use
  Company Number: PL-AUROBINDO-AUR-APL-2019-083596

PATIENT
  Age: 62 Year
  Sex: Female

DRUGS (5)
  1. ACETAZOLAMIDE. [Concomitant]
     Active Substance: ACETAZOLAMIDE
     Indication: PULMONARY HYPERTENSION
     Dosage: UNK
     Route: 065
  2. METOPROLOL. [Concomitant]
     Active Substance: METOPROLOL
     Indication: PRODUCT USED FOR UNKNOWN INDICATION
     Dosage: UNK
     Route: 065
  3. SILDENAFIL. [Suspect]
     Active Substance: SILDENAFIL
     Indication: PULMONARY HYPERTENSION
     Dosage: 20 MILLIGRAM, 3 TIMES A DAY
     Route: 065
  4. AMLODIPINE [Concomitant]
     Active Substance: AMLODIPINE BESYLATE
     Indication: PRODUCT USED FOR UNKNOWN INDICATION
     Dosage: UNK
     Route: 016
  5. ACETAZOLAMIDE. [Concomitant]
     Active Substance: ACETAZOLAMIDE
     Dosage: UNK
     Route: 048

REACTIONS (7)
  - Elschnig^s bodies [Recovered/Resolved]
  - Hypermetropia [Recovered/Resolved]
  - Retinal oedema [Recovered/Resolved]
  - Dyschromatopsia [Recovered/Resolved]
  - Macular detachment [Recovered/Resolved]
  - Serous retinal detachment [Recovered/Resolved]
  - Visual impairment [Recovered/Resolved]
